FAERS Safety Report 23710035 (Version 2)
Quarter: 2024Q2

REPORT INFORMATION
  Report Type: Spontaneous
  Country: NO (occurrence: NO)
  Receive Date: 20240405
  Receipt Date: 20240509
  Transmission Date: 20240716
  Serious: Yes (Hospitalization, Other)
  Sender: FDA-Public Use
  Company Number: None

PATIENT
  Age: 50 Year
  Sex: Female

DRUGS (4)
  1. OXAZEPAM [Concomitant]
     Active Substance: OXAZEPAM
     Dosage: CONTINUED USE OF MEDICINAL PRODUCT
  2. WEGOVY [Suspect]
     Active Substance: SEMAGLUTIDE
     Indication: Overweight
     Dosage: UNK
     Route: 058
     Dates: start: 20231011, end: 20231227
  3. FLUOXETINE HYDROCHLORIDE [Concomitant]
     Active Substance: FLUOXETINE HYDROCHLORIDE
     Dosage: CONTINUED USE OF MEDICINAL PRODUCT
  4. ESOMEPRAZOL KRKA [Concomitant]
     Dosage: CONTINUED USE OF MEDICINAL PRODUCT

REACTIONS (9)
  - Pleural effusion [Recovering/Resolving]
  - Pericardial effusion [Recovering/Resolving]
  - Ascites [Recovering/Resolving]
  - Ovarian mass [Recovering/Resolving]
  - Peritoneal lesion [Recovering/Resolving]
  - Myalgia [Recovering/Resolving]
  - Omental oedema [Recovering/Resolving]
  - Discomfort [Recovering/Resolving]
  - Abdominal distension [Recovering/Resolving]

NARRATIVE: CASE EVENT DATE: 20231127
